FAERS Safety Report 21016943 (Version 1)
Quarter: 2022Q2

REPORT INFORMATION
  Report Type: Spontaneous
  Country: DE (occurrence: DE)
  Receive Date: 20220628
  Receipt Date: 20220628
  Transmission Date: 20220721
  Serious: Yes (Other)
  Sender: FDA-Public Use
  Company Number: None

PATIENT
  Sex: Male

DRUGS (2)
  1. CYTOTEC [Suspect]
     Active Substance: MISOPROSTOL
     Dosage: UNK
     Route: 064
     Dates: start: 200812
  2. AMOXICILLIN [Concomitant]
     Active Substance: AMOXICILLIN
     Route: 042

REACTIONS (7)
  - Foetal exposure during pregnancy [Unknown]
  - Psychological trauma [Not Recovered/Not Resolved]
  - Insomnia [Not Recovered/Not Resolved]
  - Crying [Recovered/Resolved]
  - Pain [Not Recovered/Not Resolved]
  - Decreased immune responsiveness [Not Recovered/Not Resolved]
  - Infant irritability [Not Recovered/Not Resolved]

NARRATIVE: CASE EVENT DATE: 20080101
